FAERS Safety Report 24853882 (Version 1)
Quarter: 2025Q1

REPORT INFORMATION
  Report Type: Spontaneous
  Country: ES (occurrence: ES)
  Receive Date: 20250117
  Receipt Date: 20250117
  Transmission Date: 20250408
  Serious: Yes (Other)
  Sender: KYOWA
  Company Number: None

PATIENT

DRUGS (1)
  1. CRYSVITA [Suspect]
     Active Substance: BUROSUMAB-TWZA
     Indication: Hypophosphataemic osteomalacia
     Dosage: 20 MG, 1X/2 WEEKS
     Route: 058
     Dates: start: 20220404

REACTIONS (2)
  - Hungry bone syndrome [Unknown]
  - Hyperparathyroidism tertiary [Unknown]

NARRATIVE: CASE EVENT DATE: 20240506
